FAERS Safety Report 11423483 (Version 2)
Quarter: 2015Q3

REPORT INFORMATION
  Report Type: Spontaneous
  Country: US (occurrence: US)
  Receive Date: 20150827
  Receipt Date: 20150909
  Transmission Date: 20151125
  Serious: No
  Sender: FDA-Public Use
  Company Number: US-ACTELION PHARMACEUTICALS US, INC.-A-NJ2015-123189

PATIENT
  Age: 68 Year
  Sex: Female

DRUGS (2)
  1. VALCHLOR [Suspect]
     Active Substance: MECHLORETHAMINE
     Indication: MYCOSIS FUNGOIDES
     Dosage: UNK, APPLIED DAILY
     Route: 061
     Dates: start: 20150728
  2. AQUAPHOR [Concomitant]
     Active Substance: PETROLATUM

REACTIONS (3)
  - Skin discolouration [Unknown]
  - Dry skin [Unknown]
  - Application site pain [Unknown]
